FAERS Safety Report 5278148-1 (Version None)
Quarter: 2007Q1

REPORT INFORMATION
  Report Type: 
  Country: None (occurrence: None)
  Receive Date: 20061213
  Receipt Date: 20060321
  Transmission Date: 20070707
  Serious: Yes (Hospitalization)
  Sender: FDA-Public Use
  Company Number: 2006UW04950

PATIENT
  Age: 73 Year
  Sex: Male

DRUGS (1)
  1. SEROQUEL [Suspect]
     Dosage: 200 MG  PO
     Route: 048

REACTIONS (2)
  - DYSTONIA [None]
  - MAJOR DEPRESSION [None]
